FAERS Safety Report 9643701 (Version 2)
Quarter: 2013Q4

REPORT INFORMATION
  Report Type: Spontaneous
  Country: AR (occurrence: AR)
  Receive Date: 20131024
  Receipt Date: 20131028
  Transmission Date: 20140711
  Serious: Yes (Hospitalization, Other)
  Sender: FDA-Public Use
  Company Number: AR-JNJFOC-20131012001

PATIENT
  Age: 77 Year
  Sex: Male

DRUGS (1)
  1. SIMPONI [Suspect]
     Indication: RHEUMATOID ARTHRITIS
     Dosage: AT THE TIME OF THE REPORT, PATIENT RECEIVED 6 DOSAGES OF GOLIMUMAB
     Route: 058
     Dates: start: 201303

REACTIONS (3)
  - Anaemia [Unknown]
  - Drug dose omission [Unknown]
  - Device malfunction [Unknown]
